FAERS Safety Report 24406196 (Version 1)
Quarter: 2024Q4

REPORT INFORMATION
  Report Type: Spontaneous
  Country: US (occurrence: US)
  Receive Date: 20241007
  Receipt Date: 20241007
  Transmission Date: 20250115
  Serious: No
  Sender: ROCHE
  Company Number: US-ROCHE-10000096869

PATIENT

DRUGS (3)
  1. KADCYLA [Suspect]
     Active Substance: ADO-TRASTUZUMAB EMTANSINE
     Indication: Disease recurrence
     Route: 065
  2. LETROZOLE [Concomitant]
     Active Substance: LETROZOLE
  3. LUPRON [Concomitant]
     Active Substance: LEUPROLIDE ACETATE

REACTIONS (9)
  - Neuropathy peripheral [Unknown]
  - Neuralgia [Unknown]
  - Fatigue [Unknown]
  - Nausea [Unknown]
  - Colitis [Unknown]
  - Colitis ulcerative [Unknown]
  - Insomnia [Unknown]
  - Arthralgia [Unknown]
  - Pain [Unknown]
